FAERS Safety Report 25073979 (Version 1)
Quarter: 2025Q1

REPORT INFORMATION
  Report Type: Spontaneous
  Country: US (occurrence: US)
  Receive Date: 20250313
  Receipt Date: 20250313
  Transmission Date: 20250408
  Serious: No
  Sender: SANOFI AVENTIS
  Company Number: US-SA-2025SA074545

PATIENT
  Age: 36 Year
  Sex: Female

DRUGS (2)
  1. DUPIXENT [Suspect]
     Active Substance: DUPILUMAB
     Indication: Dermatitis atopic
     Dosage: 300 MG, QOW
     Route: 058
     Dates: start: 202305, end: 202410
  2. MIRENA [Concomitant]
     Active Substance: LEVONORGESTREL
     Indication: Complication associated with device

REACTIONS (2)
  - Dermatitis atopic [Unknown]
  - Skin discolouration [Unknown]

NARRATIVE: CASE EVENT DATE: 20250201
